FAERS Safety Report 9308230 (Version 2)
Quarter: 2013Q2

REPORT INFORMATION
  Report Type: Spontaneous
  Country: DE (occurrence: DE)
  Receive Date: 20130524
  Receipt Date: 20130617
  Transmission Date: 20140414
  Serious: Yes (Other)
  Sender: FDA-Public Use
  Company Number: DE-TEVA-406002GER

PATIENT
  Sex: Male

DRUGS (3)
  1. AMLODIPIN 10 MG [Suspect]
     Indication: HYPERTENSION
     Dosage: 10 MILLIGRAM DAILY;
     Route: 048
     Dates: start: 20130202, end: 20130310
  2. AMLODIPIN 10 MG [Suspect]
     Dosage: 20 MILLIGRAM DAILY;
     Route: 048
     Dates: start: 20130312, end: 20130417
  3. CANDESARTAN [Suspect]
     Indication: HYPERTENSION
     Dosage: 1 DOSAGE FORMS DAILY;
     Route: 048
     Dates: start: 20130312, end: 20130417

REACTIONS (12)
  - Amyotrophic lateral sclerosis [Not Recovered/Not Resolved]
  - Swollen tongue [Unknown]
  - Pharyngeal oedema [Unknown]
  - Swelling face [Not Recovered/Not Resolved]
  - Speech disorder [Unknown]
  - Chills [Unknown]
  - Feeling cold [Unknown]
  - Oedema peripheral [Unknown]
  - Limb discomfort [Unknown]
  - Muscle twitching [Unknown]
  - Erythema [Not Recovered/Not Resolved]
  - Neoplasm skin [Not Recovered/Not Resolved]
